FAERS Safety Report 13465974 (Version 3)
Quarter: 2019Q4

REPORT INFORMATION
  Report Type: Spontaneous
  Country: DE (occurrence: DE)
  Receive Date: 20170421
  Receipt Date: 20191218
  Transmission Date: 20200122
  Serious: Yes (Other)
  Sender: FDA-Public Use
  Company Number: DE-AMGEN-DEUSP2017056737

PATIENT
  Age: 57 Year
  Sex: Female

DRUGS (13)
  1. REPATHA [Suspect]
     Active Substance: EVOLOCUMAB
     Indication: HYPERLIPIDAEMIA
     Dosage: 420 MILLIGRAM, QMO
     Route: 065
     Dates: start: 20180403
  2. PANGROL [PANCREAS POWDER] [Concomitant]
     Dosage: 25000 UNIT, TID
  3. EUTHYROX [Concomitant]
     Active Substance: LEVOTHYROXINE SODIUM
     Dosage: 125 MICROGRAM, QD
  4. NEUROTRAT S [Concomitant]
     Active Substance: PYRIDOXINE\THIAMINE
     Dosage: 100 MILLIGRAM
  5. REPATHA [Suspect]
     Active Substance: EVOLOCUMAB
     Dosage: 140 MILLIGRAM, Q2WK
     Route: 065
     Dates: start: 201911
  6. TELMISARTAN. [Concomitant]
     Active Substance: TELMISARTAN
     Dosage: 40 MILLIGRAM, QD
  7. PREDNISOLONE. [Concomitant]
     Active Substance: PREDNISOLONE
     Indication: INFLAMMATION
     Dosage: 5 MILLIGRAM, QD
  8. REPATHA [Suspect]
     Active Substance: EVOLOCUMAB
     Indication: TYPE IIA HYPERLIPIDAEMIA
     Dosage: 140 MILLIGRAM
     Route: 065
     Dates: start: 20170213
  9. ASPIRIN. [Concomitant]
     Active Substance: ASPIRIN
     Dosage: 100 MILLIGRAM, QD
  10. METOPROLOL SUCCINATE. [Concomitant]
     Active Substance: METOPROLOL SUCCINATE
     Dosage: 47.5 MILLIGRAM, QD
  11. PANTOZOL [Concomitant]
     Active Substance: PANTOPRAZOLE SODIUM
     Dosage: 20 MILLIGRAM, QD
  12. MAGNESIUM [Concomitant]
     Active Substance: MAGNESIUM
     Dosage: UNK UNK, QD
  13. DEKRISTOL [Concomitant]
     Active Substance: CHOLECALCIFEROL
     Dosage: 500 MICROGRAM

REACTIONS (9)
  - Pain in extremity [Unknown]
  - Musculoskeletal pain [Recovered/Resolved]
  - Rhinorrhoea [Unknown]
  - Bronchitis [Unknown]
  - Influenza like illness [Unknown]
  - Pyelonephritis [Unknown]
  - Dizziness [Unknown]
  - Nausea [Unknown]
  - Fatigue [Unknown]

NARRATIVE: CASE EVENT DATE: 2017
